FAERS Safety Report 5162703-3 (Version None)
Quarter: 2006Q4

REPORT INFORMATION
  Report Type: 
  Country: None (occurrence: None)
  Receive Date: 20061201
  Receipt Date: 20060626
  Transmission Date: 20070319
  Serious: No
  Sender: FDA-Public Use
  Company Number: S06-USA-02288-01

PATIENT
  Age: 5 Year
  Sex: Male

DRUGS (7)
  1. AUGMENTIN '125' [Suspect]
     Indication: BACTERIAL INFECTION
     Route: 048
     Dates: start: 20060602, end: 20060603
  2. AEROCHAMBER [Suspect]
     Indication: ASTHMA
     Route: 065
     Dates: start: 20060602
  3. FLOVENT [Concomitant]
  4. SINGULAIR [Concomitant]
  5. NASONEX [Concomitant]
  6. FLUORIDE [Concomitant]
  7. ZYRTEC [Concomitant]
     Indication: DRUG USE FOR UNKNOWN INDICATION
     Dates: start: 20060603

REACTIONS (4)
  - FEELING HOT [None]
  - HYPERSENSITIVITY [None]
  - PRURITUS [None]
  - URTICARIA [None]
